FAERS Safety Report 13763967 (Version 1)
Quarter: 2017Q3

REPORT INFORMATION
  Report Type: Spontaneous
  Country: US (occurrence: US)
  Receive Date: 20170718
  Receipt Date: 20170718
  Transmission Date: 20171127
  Serious: Yes (Hospitalization)
  Sender: FDA-Public Use
  Company Number: US-VIFOR (INTERNATIONAL) INC.-VIT-2016-07629

PATIENT
  Age: 78 Year
  Sex: Male

DRUGS (10)
  1. COZAAR [Concomitant]
     Active Substance: LOSARTAN POTASSIUM
  2. VELTASSA [Suspect]
     Active Substance: PATIROMER
     Route: 048
     Dates: start: 2016
  3. ACETYLSALICYLIC ACID [Concomitant]
     Active Substance: ASPIRIN
  4. VELTASSA [Suspect]
     Active Substance: PATIROMER
     Indication: HYPERKALAEMIA
     Route: 048
     Dates: start: 20161025
  5. HUMULIN N [Concomitant]
     Active Substance: INSULIN HUMAN
  6. LIPITOR [Concomitant]
     Active Substance: ATORVASTATIN CALCIUM
  7. METOPROLOL TARTRATE. [Concomitant]
     Active Substance: METOPROLOL TARTRATE
  8. PLAVIX [Concomitant]
     Active Substance: CLOPIDOGREL BISULFATE
  9. HUMULIN R [Concomitant]
     Active Substance: INSULIN HUMAN
  10. FENOFIBRATE MICRO [Concomitant]
     Active Substance: FENOFIBRATE

REACTIONS (3)
  - Constipation [Not Recovered/Not Resolved]
  - Blood potassium increased [Unknown]
  - Localised infection [Unknown]

NARRATIVE: CASE EVENT DATE: 201611
